FAERS Safety Report 25414827 (Version 2)
Quarter: 2025Q2

REPORT INFORMATION
  Report Type: Report from Study
  Country: US (occurrence: US)
  Receive Date: 20250609
  Receipt Date: 20250611
  Transmission Date: 20250716
  Serious: Yes (Hospitalization)
  Sender: MERCK SHARP & DOHME LLC
  Company Number: US-009507513-2293824

PATIENT
  Sex: Male

DRUGS (21)
  1. WINREVAIR [Suspect]
     Active Substance: SOTATERCEPT-CSRK
     Indication: Pulmonary arterial hypertension
     Dosage: 1.9 ML EVERY THREE WEEKS. STRENGTH: 120 MG KIT
     Route: 058
     Dates: start: 20250422
  2. WINREVAIR [Suspect]
     Active Substance: SOTATERCEPT-CSRK
  3. WINREVAIR [Suspect]
     Active Substance: SOTATERCEPT-CSRK
  4. WINREVAIR [Suspect]
     Active Substance: SOTATERCEPT-CSRK
  5. ADEMPAS [Concomitant]
     Active Substance: RIOCIGUAT
  6. POTASSIUM CHLORIDE [Concomitant]
     Active Substance: POTASSIUM CHLORIDE
  7. SODIUM CHLORIDE [Concomitant]
     Active Substance: SODIUM CHLORIDE
  8. TORSEMIDE [Concomitant]
     Active Substance: TORSEMIDE
  9. PANTOPRAZOLE SODIUM [Concomitant]
     Active Substance: PANTOPRAZOLE SODIUM
  10. KETAMINE HCL USP [Concomitant]
  11. LECITHIN [Concomitant]
     Active Substance: LECITHIN
  12. ANCILLARY SUPPLIES [Concomitant]
  13. OPSUMIT [Concomitant]
     Active Substance: MACITENTAN
  14. CLONIDINE USP [Concomitant]
  15. KETOPROFEN USP [Concomitant]
  16. SPIRONOLACTONE [Concomitant]
     Active Substance: SPIRONOLACTONE
  17. LIDOCAINE HYDROCHLORIDE [Concomitant]
     Active Substance: LIDOCAINE HYDROCHLORIDE
  18. AMITRIPTYLINE USP [Concomitant]
  19. GABAPENTIN [Concomitant]
     Active Substance: GABAPENTIN
  20. POLOXAMER GEL [Concomitant]
  21. REMODULIN [Concomitant]
     Active Substance: TREPROSTINIL

REACTIONS (2)
  - Dehydration [Unknown]
  - Excessive exercise [Unknown]

NARRATIVE: CASE EVENT DATE: 20250101
